FAERS Safety Report 5387014-2 (Version None)
Quarter: 2007Q3

REPORT INFORMATION
  Report Type: 
  Country: None (occurrence: None)
  Receive Date: 20070713
  Receipt Date: 20070705
  Transmission Date: 20080115
  Serious: Yes (Other)
  Sender: FDA-Public Use
  Company Number: US-PFIZER INC-2007055905

PATIENT
  Sex: Female
  Weight: 58.181 kg

DRUGS (13)
  1. LYRICA [Suspect]
     Indication: PAIN
  2. LYRICA [Suspect]
     Indication: SENSORY DISTURBANCE
  3. ASPIRIN [Concomitant]
  4. NORPACE [Concomitant]
  5. LANOXIN [Concomitant]
  6. SEROQUEL [Concomitant]
  7. ZOLOFT [Concomitant]
  8. XANAX [Concomitant]
  9. VITAMIN B [Concomitant]
  10. ASCORBIC ACID [Concomitant]
  11. VITAMIN D [Concomitant]
  12. CALCIUM CHLORIDE [Concomitant]
  13. MAGNESIUM SULFATE [Concomitant]

REACTIONS (6)
  - ABASIA [None]
  - BALANCE DISORDER [None]
  - DIZZINESS [None]
  - DYSSTASIA [None]
  - FEELING ABNORMAL [None]
  - HEADACHE [None]
